FAERS Safety Report 5925323-6 (Version None)
Quarter: 2008Q3

REPORT INFORMATION
  Report Type: 
  Country: None (occurrence: None)
  Receive Date: 20080909
  Receipt Date: 20071016
  Transmission Date: 20090109
  Serious: Yes (Death)
  Sender: FDA-Public Use
  Company Number: 163-20785-07060513

PATIENT
  Age: 60 Year
  Sex: Male

DRUGS (6)
  1. THALOMID [Suspect]
     Indication: MULTIPLE MYELOMA
     Dosage: 100 MG, 1 IN 1 D, ORAL : 100 MG, 2 IN 1 D, ORAL
     Route: 048
     Dates: start: 20070101, end: 20070201
  2. THALOMID [Suspect]
     Indication: MULTIPLE MYELOMA
     Dosage: 100 MG, 1 IN 1 D, ORAL : 100 MG, 2 IN 1 D, ORAL
     Route: 048
     Dates: start: 20070216, end: 20070425
  3. THALOMID [Suspect]
  4. THALOMID [Suspect]
  5. THALOMID [Suspect]
  6. THALOMID [Suspect]

REACTIONS (1)
  - MULTIPLE MYELOMA [None]
